FAERS Safety Report 4497644-8 (Version None)
Quarter: 2004Q4

REPORT INFORMATION
  Report Type: 
  Country: None (occurrence: None)
  Receive Date: 20041103
  Receipt Date: 20041019
  Transmission Date: 20050328
  Serious: Yes (Death)
  Sender: FDA-Public Use
  Company Number: US-JNJFOC-20041005805

PATIENT
  Age: 47 Year
  Sex: Male

DRUGS (4)
  1. FENTANYL [Suspect]
     Indication: DRUG USE FOR UNKNOWN INDICATION
     Route: 050
  2. COCAINE [Suspect]
     Indication: INTENTIONAL MISUSE
     Route: 065
  3. PROPOXYPHENE [Concomitant]
  4. DIPHENHYDRAMINE [Concomitant]

REACTIONS (2)
  - ACCIDENTAL DEATH [None]
  - DRUG SCREEN POSITIVE [None]
